FAERS Safety Report 22636269 (Version 1)
Quarter: 2023Q2

REPORT INFORMATION
  Report Type: Spontaneous
  Country: GR (occurrence: GR)
  Receive Date: 20230623
  Receipt Date: 20230623
  Transmission Date: 20230721
  Serious: Yes (Other)
  Sender: FDA-Public Use
  Company Number: GR-AMGEN-GRCSP2023095645

PATIENT
  Age: 71 Year
  Sex: Female

DRUGS (1)
  1. ADALIMUMAB [Suspect]
     Active Substance: ADALIMUMAB
     Indication: Crohn^s disease
     Dosage: 40 MILLIGRAM, Q2W (40 MILLIGRAM, Q2WK)
     Route: 065

REACTIONS (4)
  - Oesophageal stenosis [Unknown]
  - Oesophageal food impaction [Unknown]
  - Oesophageal infection [Unknown]
  - Drug ineffective [Unknown]
